FAERS Safety Report 17371553 (Version 2)
Quarter: 2021Q2

REPORT INFORMATION
  Report Type: Report from Study
  Country: PL (occurrence: PL)
  Receive Date: 20200205
  Receipt Date: 20210624
  Transmission Date: 20210716
  Serious: Yes (Other)
  Sender: FDA-Public Use
  Company Number: PL-ASTELLAS-2020US003693

PATIENT
  Age: 45 Year
  Sex: Female

DRUGS (7)
  1. PREDNISONE. [Concomitant]
     Active Substance: PREDNISONE
     Indication: IMMUNOSUPPRESSANT DRUG THERAPY
     Dosage: 5 UNITS NOT REPORTED, TOTAL DAILY DOSE
     Route: 065
     Dates: start: 20150219, end: 20210107
  2. PREDNISONE. [Concomitant]
     Active Substance: PREDNISONE
     Dosage: 7.5 UNITS NOT REPORTED, TOTAL DAILY DOSE
     Route: 065
     Dates: start: 20210212, end: 20210328
  3. MYCOPHENOLATE MOFETIL. [Concomitant]
     Active Substance: MYCOPHENOLATE MOFETIL
     Indication: IMMUNOSUPPRESSANT DRUG THERAPY
     Dosage: 1500 UNITS NOT REPORTED, TOTAL DAILY DOSE
     Route: 065
     Dates: start: 20150518, end: 20160811
  4. TACROLIMUS. [Suspect]
     Active Substance: TACROLIMUS
     Indication: IMMUNOSUPPRESSION
     Route: 048
     Dates: start: 20180413
  5. PREDNISONE. [Concomitant]
     Active Substance: PREDNISONE
     Dosage: 10 UNITS NOT REPORTED, TOTAL DAILY DOSE
     Route: 065
     Dates: start: 20210108, end: 20210211
  6. MYCOPHENOLATE MOFETIL. [Concomitant]
     Active Substance: MYCOPHENOLATE MOFETIL
     Dosage: 2000 UNITS NOT REPORTED, TOTAL DAILY DOSE
     Route: 065
     Dates: start: 20160812
  7. PREDNISONE. [Concomitant]
     Active Substance: PREDNISONE
     Dosage: 5 UNITS NOT REPORTED, TOTAL DAILY DOSE
     Route: 065
     Dates: start: 20210301

REACTIONS (1)
  - Pulmonary mass [Not Recovered/Not Resolved]

NARRATIVE: CASE EVENT DATE: 20191219
